FAERS Safety Report 25902323 (Version 1)
Quarter: 2025Q4

REPORT INFORMATION
  Report Type: Spontaneous
  Country: GB (occurrence: GB)
  Receive Date: 20251009
  Receipt Date: 20251009
  Transmission Date: 20260117
  Serious: Yes (Other)
  Sender: BAUSCH AND LOMB
  Company Number: GB-BAUSCH-BH-2025-018558

PATIENT
  Age: 51 Year
  Sex: Female

DRUGS (3)
  1. RIFAXIMIN [Suspect]
     Active Substance: RIFAXIMIN
     Indication: Gastrointestinal microorganism overgrowth
     Dosage: 550 MG, Q8HR
     Route: 065
     Dates: start: 20250916, end: 20250926
  2. VENLAFAXINE [Concomitant]
     Active Substance: VENLAFAXINE HYDROCHLORIDE
     Indication: Post-traumatic stress disorder
     Dosage: 37.5 MG, BID
  3. ESTRADIOL [Concomitant]
     Active Substance: ESTRADIOL
     Indication: Menopause
     Dosage: UNK -EVEROL COMBINED HRT

REACTIONS (8)
  - Vaginal haemorrhage [Recovering/Resolving]
  - Brain fog [Unknown]
  - Mood swings [Recovering/Resolving]
  - Mania [Recovering/Resolving]
  - Off label use [Unknown]
  - Feeling drunk [Recovering/Resolving]
  - Dysgraphia [Unknown]
  - Dyspepsia [Recovering/Resolving]

NARRATIVE: CASE EVENT DATE: 20250925
